FAERS Safety Report 20961496 (Version 1)
Quarter: 2022Q2

REPORT INFORMATION
  Report Type: Spontaneous
  Country: US (occurrence: None)
  Receive Date: 20220614
  Receipt Date: 20220614
  Transmission Date: 20220720
  Serious: No
  Sender: FDA-Public Use
  Company Number: None

PATIENT
  Age: 61 Year
  Sex: Female
  Weight: 90.72 kg

DRUGS (1)
  1. ADBRY [Suspect]
     Active Substance: TRALOKINUMAB-LDRM
     Indication: Dermatitis atopic
     Dosage: INJECT 600MG 4Y SUBCUTANEOUSLY ON DAY 1, THE  300MG (2 SYRINGES) EVERY 2 WEEKS STARTING ON DAY 15 AS
     Route: 058
     Dates: start: 202204

REACTIONS (1)
  - Cardiovascular insufficiency [None]
